FAERS Safety Report 24181933 (Version 2)
Quarter: 2024Q3

REPORT INFORMATION
  Report Type: Spontaneous
  Country: US (occurrence: US)
  Receive Date: 20240807
  Receipt Date: 20240815
  Transmission Date: 20241017
  Serious: Yes (Other)
  Sender: SANOFI AVENTIS
  Company Number: US-SA-2024SA231762

PATIENT
  Age: 36 Year
  Sex: Male

DRUGS (8)
  1. ELOCTATE [Suspect]
     Active Substance: EFMOROCTOCOG ALFA
     Indication: Factor VIII deficiency
     Dosage: 3000 UNITS (3209-3921) SLOW IV PUSH OVER 3-5 MINUTES PROPHYLACTICALLY , Q4D
     Route: 042
     Dates: start: 202001
  2. ELOCTATE [Suspect]
     Active Substance: EFMOROCTOCOG ALFA
     Indication: Factor VIII deficiency
     Dosage: 3000 UNITS (3209-3921) SLOW IV PUSH OVER 3-5 MINUTES PROPHYLACTICALLY , Q4D
     Route: 042
     Dates: start: 202001
  3. ELOCTATE [Suspect]
     Active Substance: EFMOROCTOCOG ALFA
     Indication: Haemorrhage
     Dosage: 3000 UNITS (3209-3921) SLOW IV PUSH OVER 3-5 MINUTES PROPHYLACTICALLY , PRN
     Route: 042
     Dates: start: 202001
  4. ELOCTATE [Suspect]
     Active Substance: EFMOROCTOCOG ALFA
     Indication: Haemorrhage
     Dosage: 3000 UNITS (3209-3921) SLOW IV PUSH OVER 3-5 MINUTES PROPHYLACTICALLY , PRN
     Route: 042
     Dates: start: 202001
  5. ELOCTATE [Suspect]
     Active Substance: EFMOROCTOCOG ALFA
     Indication: Haemophilia
     Dosage: 565 UNITS (3209-3921) SLOW IV PUSH OVER 3-5 MINUTES PROPHYLACTICALLY , Q4D
     Route: 042
     Dates: start: 202001
  6. ELOCTATE [Suspect]
     Active Substance: EFMOROCTOCOG ALFA
     Indication: Haemophilia
     Dosage: 565 UNITS (3209-3921) SLOW IV PUSH OVER 3-5 MINUTES PROPHYLACTICALLY , Q4D
     Route: 042
     Dates: start: 202001
  7. ELOCTATE [Suspect]
     Active Substance: EFMOROCTOCOG ALFA
     Dosage: 565 UNITS (3209-3921) SLOW IV PUSH OVER 3-5 MINUTES PROPHYLACTICALLY , PRN
     Route: 042
     Dates: start: 202001
  8. ELOCTATE [Suspect]
     Active Substance: EFMOROCTOCOG ALFA
     Dosage: 565 UNITS (3209-3921) SLOW IV PUSH OVER 3-5 MINUTES PROPHYLACTICALLY , PRN
     Route: 042
     Dates: start: 202001

REACTIONS (2)
  - Haemarthrosis [Unknown]
  - Spontaneous haemorrhage [Unknown]

NARRATIVE: CASE EVENT DATE: 20240719
